FAERS Safety Report 25654813 (Version 1)
Quarter: 2025Q3

REPORT INFORMATION
  Report Type: Spontaneous
  Country: IN (occurrence: IN)
  Receive Date: 20250807
  Receipt Date: 20250807
  Transmission Date: 20251021
  Serious: Yes (Other)
  Sender: RANBAXY
  Company Number: IN-SUN PHARMACEUTICAL INDUSTRIES INC-2025R1-521400

PATIENT
  Age: 17 Year
  Sex: Male

DRUGS (4)
  1. FLUVOXAMINE [Suspect]
     Active Substance: FLUVOXAMINE
     Indication: Obsessive-compulsive disorder
     Dosage: 300 MILLIGRAM, QD
     Route: 065
  2. VENLAFAXINE [Suspect]
     Active Substance: VENLAFAXINE HYDROCHLORIDE
     Indication: Obsessive-compulsive disorder
     Dosage: 225 MILLIGRAM, QD
     Route: 065
  3. ARIPIPRAZOLE [Concomitant]
     Active Substance: ARIPIPRAZOLE
     Indication: Obsessive-compulsive disorder
     Route: 065
  4. CLOMIPRAMINE [Concomitant]
     Active Substance: CLOMIPRAMINE
     Indication: Obsessive-compulsive disorder
     Route: 065

REACTIONS (3)
  - Sedation [Unknown]
  - Treatment failure [Unknown]
  - Weight increased [Unknown]
